FAERS Safety Report 9871080 (Version 1)
Quarter: 2014Q1

REPORT INFORMATION
  Report Type: Spontaneous
  Country: FR (occurrence: FR)
  Receive Date: 20140205
  Receipt Date: 20140205
  Transmission Date: 20141002
  Serious: Yes (Life-Threatening)
  Sender: FDA-Public Use
  Company Number: PHHY2014FR011365

PATIENT
  Age: 53 Year
  Sex: Female

DRUGS (8)
  1. 5-FLUOROURACIL [Suspect]
     Indication: BREAST CANCER METASTATIC
     Dosage: 1200 MG, QD
     Route: 042
     Dates: start: 20130920, end: 20130922
  2. NAVELBINE [Concomitant]
     Indication: BREAST CANCER METASTATIC
     Route: 042
     Dates: start: 20130920, end: 20130920
  3. ZOMETA [Concomitant]
     Indication: BREAST CANCER METASTATIC
     Route: 042
     Dates: start: 20130920, end: 20130920
  4. EXFORGE [Concomitant]
  5. SELOKEN [Concomitant]
     Dosage: 200 MG, UNK
  6. KARDEGIC [Concomitant]
     Dosage: 75 MG, QD
  7. OMEPRAZOLE [Concomitant]
     Dosage: 10 MG, QD
  8. TAHOR [Concomitant]
     Dosage: 40 MG, QD

REACTIONS (1)
  - Acute coronary syndrome [Recovered/Resolved]
